FAERS Safety Report 4550663-5 (Version None)
Quarter: 2005Q1

REPORT INFORMATION
  Report Type: 
  Country: None (occurrence: None)
  Receive Date: 20050112
  Receipt Date: 20050105
  Transmission Date: 20050727
  Serious: Yes (Hospitalization)
  Sender: FDA-Public Use
  Company Number: US-ABBOTT-05P-163-0285467-00

PATIENT
  Sex: Female
  Weight: 64.468 kg

DRUGS (3)
  1. HUMIRA [Suspect]
     Indication: RHEUMATOID ARTHRITIS
     Route: 058
     Dates: start: 20040301, end: 20041218
  2. HUMIRA [Suspect]
     Dates: start: 20050101
  3. LEFLUNOMIDE [Concomitant]
     Indication: RHEUMATOID ARTHRITIS
     Route: 048
     Dates: start: 20041201

REACTIONS (2)
  - ARTHRALGIA [None]
  - PYREXIA [None]
